FAERS Safety Report 14298956 (Version 1)
Quarter: 2017Q4

REPORT INFORMATION
  Report Type: Spontaneous
  Country: US (occurrence: US)
  Receive Date: 20171216
  Receipt Date: 20171216
  Transmission Date: 20180321
  Serious: Yes (Life-Threatening, Other)
  Sender: FDA-Public Use
  Company Number: None

PATIENT
  Sex: Male
  Weight: 58.5 kg

DRUGS (8)
  1. DR NATURAS COLONIX [Concomitant]
  2. APPLE CIDER VINEGAR [Concomitant]
     Active Substance: APPLE CIDER VINEGAR
  3. D-MANNOSE [Concomitant]
  4. ENZYME TABLETS [Concomitant]
  5. LOOSE LEAF TEA (YERBA MATE) W/DANDELION ROOT+TUMERIC+CINNAMON+OREGAN+THYME [Concomitant]
  6. LEVAQUIN [Suspect]
     Active Substance: LEVOFLOXACIN
     Indication: URINARY TRACT INFECTION
  7. BAKING SODA W/WATER [Concomitant]
  8. VITAMIN C [Concomitant]
     Active Substance: ASCORBIC ACID

REACTIONS (3)
  - Feeling abnormal [None]
  - Suicidal ideation [None]
  - Depression [None]

NARRATIVE: CASE EVENT DATE: 20171216
